FAERS Safety Report 5333880-6 (Version None)
Quarter: 2007Q2

REPORT INFORMATION
  Report Type: 
  Country: None (occurrence: None)
  Receive Date: 20070524
  Receipt Date: 20070517
  Transmission Date: 20071010
  Serious: Yes (Hospitalization)
  Sender: FDA-Public Use
  Company Number: US-SHR-US-2007-017993

PATIENT
  Age: 75 Year
  Sex: Female
  Weight: 72.562 kg

DRUGS (2)
  1. LEUKINE [Suspect]
     Dosage: 250 MCG/14 DAYS ON,14 DAYS OFF
     Route: 058
     Dates: start: 20030901
  2. CIMETIDINE HCL [Concomitant]
     Dosage: 200 MG, 3X/DAY
     Route: 048

REACTIONS (1)
  - MUSCLE SPASMS [None]
